FAERS Safety Report 10234933 (Version 2)
Quarter: 2014Q2

REPORT INFORMATION
  Report Type: Spontaneous
  Country: AU (occurrence: AU)
  Receive Date: 20140613
  Receipt Date: 20140626
  Transmission Date: 20141212
  Serious: Yes (Death)
  Sender: FDA-Public Use
  Company Number: AU-JNJFOC-20140520025

PATIENT
  Sex: Male
  Weight: 75 kg

DRUGS (5)
  1. ZYTIGA [Suspect]
     Indication: PROSTATE CANCER
     Dosage: 250 MG 4 TABLETS A DAY
     Route: 065
  2. LIPITOR [Concomitant]
     Indication: BLOOD CHOLESTEROL
     Route: 065
  3. VASOCARDOL [Concomitant]
     Indication: HYPOTENSION
     Route: 065
  4. VASOCARDOL [Concomitant]
     Indication: ANGINA PECTORIS
     Route: 065
  5. PREDNISOLONE [Concomitant]
     Indication: PROSTATE CANCER
     Route: 048

REACTIONS (1)
  - Prostate cancer metastatic [Fatal]
